FAERS Safety Report 17418700 (Version 1)
Quarter: 2020Q1

REPORT INFORMATION
  Report Type: Spontaneous
  Country: US (occurrence: US)
  Receive Date: 20200214
  Receipt Date: 20200214
  Transmission Date: 20200409
  Serious: No
  Sender: FDA-Public Use
  Company Number: US-DRREDDYS-USA/USA/20/0119368

PATIENT
  Age: 50 Year
  Sex: Female
  Weight: 58.5 kg

DRUGS (1)
  1. HABITROL [Suspect]
     Active Substance: NICOTINE
     Indication: TOBACCO USER
     Route: 062
     Dates: start: 20200115, end: 20200203

REACTIONS (3)
  - Therapy cessation [Unknown]
  - Application site exfoliation [Unknown]
  - Application site burn [Not Recovered/Not Resolved]

NARRATIVE: CASE EVENT DATE: 20200129
